FAERS Safety Report 13036779 (Version 1)
Quarter: 2016Q4

REPORT INFORMATION
  Report Type: Report from Study
  Country: None (occurrence: PR)
  Receive Date: 20161216
  Receipt Date: 20161216
  Transmission Date: 20170207
  Serious: Yes (Other)
  Sender: FDA-Public Use
  Company Number: PR-ABBVIE-16K-131-1761448-00

PATIENT
  Age: 45 Year
  Sex: Female

DRUGS (1)
  1. HUMIRA [Suspect]
     Active Substance: ADALIMUMAB
     Indication: RHEUMATOID ARTHRITIS
     Route: 058
     Dates: end: 201610

REACTIONS (6)
  - Anorectal disorder [Unknown]
  - Unevaluable event [Unknown]
  - Gastrointestinal mucosal disorder [Not Recovered/Not Resolved]
  - Precancerous cells present [Unknown]
  - Cervix carcinoma [Not Recovered/Not Resolved]
  - Cervicitis human papilloma virus [Not Recovered/Not Resolved]

NARRATIVE: CASE EVENT DATE: 201608
